FAERS Safety Report 11445025 (Version 1)
Quarter: 2015Q3

REPORT INFORMATION
  Report Type: Report from Study
  Country: AT (occurrence: AT)
  Receive Date: 20150902
  Receipt Date: 20150902
  Transmission Date: 20151125
  Serious: Yes (Hospitalization, Other)
  Sender: FDA-Public Use
  Company Number: AT-BRISTOL-MYERS SQUIBB COMPANY-BMS-2015-056054

PATIENT
  Age: 41 Year
  Sex: Female
  Weight: 90 kg

DRUGS (6)
  1. CYTARABINE. [Concomitant]
     Active Substance: CYTARABINE
     Indication: ACUTE MONOCYTIC LEUKAEMIA
     Dosage: 209 MG, QD
     Route: 065
     Dates: start: 20111216, end: 20111222
  2. ETOPOSIDE PHOSPHATE [Suspect]
     Active Substance: ETOPOSIDE PHOSPHATE
     Indication: ACUTE MONOCYTIC LEUKAEMIA
     Dosage: 209 MG, QD
     Route: 065
     Dates: start: 20111216, end: 20111218
  3. TRETINOIN. [Concomitant]
     Active Substance: TRETINOIN
     Indication: ACUTE MONOCYTIC LEUKAEMIA
     Dosage: 90 MG, QD
     Route: 065
     Dates: start: 20111221, end: 20111223
  4. IDARUBICIN HCL [Concomitant]
     Active Substance: IDARUBICIN HYDROCHLORIDE
     Indication: ACUTE MONOCYTIC LEUKAEMIA
     Dosage: QD
     Route: 065
     Dates: start: 20111216, end: 20111218
  5. GEMTUZUMAB OZOGAMICIN [Concomitant]
     Active Substance: GEMTUZUMAB OZOGAMICIN
     Indication: ACUTE MONOCYTIC LEUKAEMIA
     Dosage: 6.27 MG, QD
     Route: 065
     Dates: start: 20111216, end: 20111216
  6. TRETINOIN. [Concomitant]
     Active Substance: TRETINOIN
     Indication: CONTRACEPTIVE CAP
     Dosage: 30 MG, QD
     Route: 065
     Dates: start: 20111224, end: 20120105

REACTIONS (1)
  - Immune thrombocytopenic purpura [Recovered/Resolved]

NARRATIVE: CASE EVENT DATE: 20111225
